FAERS Safety Report 11615306 (Version 2)
Quarter: 2015Q4

REPORT INFORMATION
  Report Type: Spontaneous
  Country: FR (occurrence: FR)
  Receive Date: 20151009
  Receipt Date: 20151105
  Transmission Date: 20160304
  Serious: Yes (Other)
  Sender: FDA-Public Use
  Company Number: FR-AUROBINDO-AUR-APL-2015-08975

PATIENT
  Age: 56 Year
  Sex: Male

DRUGS (1)
  1. PANTOPRAZOLE GASTRO-RESISTANT TABLET 20MG [Suspect]
     Active Substance: PANTOPRAZOLE SODIUM
     Indication: ABDOMINAL PAIN UPPER
     Dosage: 1 DF, DAILY
     Route: 048
     Dates: start: 201505, end: 201508

REACTIONS (14)
  - Myalgia [Recovering/Resolving]
  - Ocular icterus [Recovered/Resolved]
  - Arthralgia [Recovering/Resolving]
  - Fatigue [Not Recovered/Not Resolved]
  - Weight decreased [Unknown]
  - White blood cell analysis abnormal [Not Recovered/Not Resolved]
  - Lymphadenopathy [Unknown]
  - Eye haemorrhage [Not Recovered/Not Resolved]
  - Insomnia [Unknown]
  - Red blood cell analysis abnormal [Not Recovered/Not Resolved]
  - Gamma-glutamyltransferase increased [Unknown]
  - Hepatic pain [Not Recovered/Not Resolved]
  - Headache [Not Recovered/Not Resolved]
  - Chest X-ray abnormal [Not Recovered/Not Resolved]

NARRATIVE: CASE EVENT DATE: 2015
